FAERS Safety Report 13237527 (Version 1)
Quarter: 2017Q1

REPORT INFORMATION
  Report Type: Spontaneous
  Country: US (occurrence: US)
  Receive Date: 20170215
  Receipt Date: 20170215
  Transmission Date: 20170428
  Serious: No
  Sender: FDA-Public Use
  Company Number: US-ELI_LILLY_AND_COMPANY-US201702000352

PATIENT
  Age: 64 Year
  Sex: Female

DRUGS (4)
  1. BASAGLAR [Suspect]
     Active Substance: INSULIN GLARGINE
     Indication: TYPE 2 DIABETES MELLITUS
     Dosage: 50 U, QD
     Route: 065
     Dates: start: 20170130
  2. BASAGLAR [Suspect]
     Active Substance: INSULIN GLARGINE
     Dosage: 75 U, QD
     Route: 065
  3. METFORMIN [Concomitant]
     Active Substance: METFORMIN HYDROCHLORIDE
     Dosage: 500 MG, BID
     Route: 065
  4. NOVOLOG [Concomitant]
     Active Substance: INSULIN ASPART
     Dosage: UNK, OTHER
     Route: 065

REACTIONS (1)
  - Intentional underdose [Unknown]

NARRATIVE: CASE EVENT DATE: 20170130
